FAERS Safety Report 23837976 (Version 1)
Quarter: 2024Q2

REPORT INFORMATION
  Report Type: Spontaneous
  Country: SA (occurrence: SA)
  Receive Date: 20240509
  Receipt Date: 20240509
  Transmission Date: 20240716
  Serious: Yes (Other)
  Sender: FDA-Public Use
  Company Number: SA-ViiV Healthcare Limited-SA2024EME057559

PATIENT

DRUGS (1)
  1. LAMIVUDINE [Suspect]
     Active Substance: LAMIVUDINE
     Indication: Chronic hepatitis B
     Dosage: UNK,FOR 3 YEARS , 100 MG 200 MG IN ALTERNATIVE DAYS

REACTIONS (2)
  - Hepatitis B [Unknown]
  - Product use issue [Unknown]
